FAERS Safety Report 9129105 (Version 1)
Quarter: 2013Q1

REPORT INFORMATION
  Report Type: Spontaneous
  Country: US (occurrence: US)
  Receive Date: 20130228
  Receipt Date: 20130228
  Transmission Date: 20140127
  Serious: No
  Sender: FDA-Public Use
  Company Number: US-BAYER-2013-019061

PATIENT
  Age: 69 Year
  Sex: Female
  Weight: 74 kg

DRUGS (3)
  1. ONE-A-DAY WOMENS VITACRAVES GUMMIES [Suspect]
     Dosage: 2 DF, QD
     Route: 048
     Dates: start: 20130131, end: 20130203
  2. ALEVE CAPLET/TABLET,MIDOL EXTENDED RELIEF CAPLET [Suspect]
     Indication: HEART RATE INCREASED
     Dosage: UNK
     Dates: start: 20130203
  3. ALEVE CAPLET/TABLET,MIDOL EXTENDED RELIEF CAPLET [Suspect]
     Indication: CHEST PAIN

REACTIONS (4)
  - Chest pain [Recovered/Resolved]
  - Heart rate increased [Recovered/Resolved]
  - Therapeutic response unexpected [None]
  - Off label use [None]
